FAERS Safety Report 25430291 (Version 1)
Quarter: 2025Q2

REPORT INFORMATION
  Report Type: Spontaneous
  Country: US (occurrence: None)
  Receive Date: 20250612
  Receipt Date: 20250612
  Transmission Date: 20250717
  Serious: Yes (Other)
  Sender: FDA-CTU
  Company Number: None

PATIENT
  Age: 80 Year
  Sex: Female

DRUGS (1)
  1. TEZEPELUMAB [Suspect]
     Active Substance: TEZEPELUMAB
     Indication: Asthma
     Route: 058
     Dates: start: 20250516, end: 20250529

REACTIONS (4)
  - Rash [None]
  - Rash [None]
  - Rash erythematous [None]
  - Rash pruritic [None]

NARRATIVE: CASE EVENT DATE: 20250529
